FAERS Safety Report 5932424-5 (Version None)
Quarter: 2008Q4

REPORT INFORMATION
  Report Type: 
  Country: None (occurrence: None)
  Receive Date: 20081028
  Receipt Date: 20081024
  Transmission Date: 20090506
  Serious: Yes (Hospitalization)
  Sender: FDA-Public Use
  Company Number: JP-BRISTOL-MYERS SQUIBB COMPANY-14382055

PATIENT
  Age: 60 Year
  Sex: Female

DRUGS (10)
  1. ABATACEPT [Suspect]
     Indication: RHEUMATOID ARTHRITIS
     Dosage: INTERRUPTED ON 09JUL2008
     Route: 041
     Dates: start: 20070221
  2. METOLATE [Concomitant]
     Indication: RHEUMATOID ARTHRITIS
     Dosage: TAB
     Route: 048
     Dates: start: 20070221, end: 20080716
  3. PREDNISOLONE [Concomitant]
     Indication: RHEUMATOID ARTHRITIS
     Dosage: }12 WEEKS PRIOR TO ENROLLMENT TO 06AUG2007: 5MG SID 13MAY2008 ONGOING: 2MG SID
     Route: 048
     Dates: start: 20070807, end: 20080512
  4. INTENURSE [Concomitant]
     Indication: RHEUMATOID ARTHRITIS
     Dosage: TAB }12 WEEKS PRIOR TO ENROLLMENT
     Route: 048
     Dates: end: 20080317
  5. GASPORT [Concomitant]
     Dosage: TAB
     Route: 048
     Dates: start: 20071126
  6. ERISPAN [Concomitant]
     Indication: INSOMNIA
     Dosage: TAB
     Route: 048
     Dates: start: 20070806, end: 20080608
  7. FOLIAMIN [Concomitant]
     Dosage: TAB PRIOR TO OBTAINING IC-ONGOING
     Route: 048
  8. SENNOSIDE [Concomitant]
     Indication: CONSTIPATION
     Dosage: TAB
     Route: 048
     Dates: start: 20080611
  9. MAGNESIUM OXIDE [Concomitant]
     Indication: CONSTIPATION
     Dosage: POWDER FORM PRIOR TO OBTAINING IC - ONGOIN
     Route: 048
  10. ITRIZOLE [Concomitant]
     Indication: CONSTIPATION
     Dosage: CAP
     Route: 048
     Dates: start: 20070611, end: 20080512

REACTIONS (1)
  - ANAL FISTULA [None]
